FAERS Safety Report 4569490-8 (Version None)
Quarter: 2005Q1

REPORT INFORMATION
  Report Type: 
  Country: None (occurrence: None)
  Receive Date: 20050201
  Receipt Date: 20041029
  Transmission Date: 20050727
  Serious: Yes (Death)
  Sender: FDA-Public Use
  Company Number: US_0501111017

PATIENT
  Sex: Male

DRUGS (2)
  1. ZYPREXA [Suspect]
     Indication: BIPOLAR DISORDER
     Dates: start: 20030501
  2. ZYPREXA [Suspect]
     Indication: SCHIZOPHRENIA
     Dates: start: 20030501

REACTIONS (1)
  - DIABETES MELLITUS [None]
